FAERS Safety Report 25628430 (Version 2)
Quarter: 2025Q3

REPORT INFORMATION
  Report Type: Report from Study
  Country: US (occurrence: US)
  Receive Date: 20250731
  Receipt Date: 20250813
  Transmission Date: 20251020
  Serious: Yes (Other)
  Sender: ALEXION PHARMACEUTICALS
  Company Number: US-AstraZeneca-CH-00916069A

PATIENT
  Sex: Female

DRUGS (3)
  1. FULVESTRANT [Suspect]
     Active Substance: FULVESTRANT
     Route: 065
  2. FULVESTRANT [Suspect]
     Active Substance: FULVESTRANT
  3. CAPIVASERTIB [Suspect]
     Active Substance: CAPIVASERTIB
     Route: 065

REACTIONS (7)
  - Renal impairment [Unknown]
  - Dehydration [Recovered/Resolved]
  - Drug ineffective [Unknown]
  - Illness [Unknown]
  - Off label use [Unknown]
  - Renal disorder [Recovered/Resolved]
  - Inappropriate schedule of product administration [Unknown]
